FAERS Safety Report 9748534 (Version 4)
Quarter: 2014Q1

REPORT INFORMATION
  Report Type: Spontaneous
  Country: JP (occurrence: None)
  Receive Date: 20131209
  Receipt Date: 20140214
  Transmission Date: 20141002
  Serious: Yes (Death)
  Sender: FDA-Public Use
  Company Number: JP-013919

PATIENT
  Age: 84 Year
  Sex: Male

DRUGS (3)
  1. DEGARELIX [Suspect]
     Indication: PROSTATE CANCER
     Dosage: 80 MG 1X/4 WEEK, SUBCUTANEOOUS
     Route: 058
     Dates: end: 20131105
  2. AVOLVE [Concomitant]
  3. ESTRACYT / 00327002/ [Concomitant]

REACTIONS (4)
  - Intentional drug misuse [None]
  - Anti-androgen withdrawal syndrome [None]
  - Prostatic specific antigen increased [None]
  - Incorrect dose administered [None]
